FAERS Safety Report 17454861 (Version 1)
Quarter: 2020Q1

REPORT INFORMATION
  Report Type: Spontaneous
  Country: US (occurrence: US)
  Receive Date: 20200225
  Receipt Date: 20200225
  Transmission Date: 20200409
  Serious: No
  Sender: FDA-Public Use
  Company Number: US-AMGEN-USASP2020029546

PATIENT
  Age: 70 Year
  Sex: Male
  Weight: 122 kg

DRUGS (1)
  1. ENBREL [Suspect]
     Active Substance: ETANERCEPT
     Indication: RHEUMATOID ARTHRITIS
     Dosage: 50 MILLIGRAM, QWK
     Route: 030
     Dates: start: 2007, end: 20200202

REACTIONS (6)
  - Arthralgia [Unknown]
  - Off label use [Unknown]
  - Product use issue [Unknown]
  - Peripheral swelling [Unknown]
  - Drug ineffective [Unknown]
  - Condition aggravated [Unknown]
